FAERS Safety Report 17629139 (Version 2)
Quarter: 2020Q2

REPORT INFORMATION
  Report Type: Spontaneous
  Country: IT (occurrence: IT)
  Receive Date: 20200406
  Receipt Date: 20200428
  Transmission Date: 20200713
  Serious: Yes (Other)
  Sender: FDA-Public Use
  Company Number: IT-SA-2020SA077404

PATIENT
  Age: 21 Year
  Sex: Female

DRUGS (1)
  1. ENOXAPARIN SODIUM. [Suspect]
     Active Substance: ENOXAPARIN SODIUM
     Indication: THROMBOSIS PROPHYLAXIS
     Dosage: 12000 KIU, QD
     Route: 058
     Dates: start: 20200115, end: 20200202

REACTIONS (2)
  - International normalised ratio increased [Recovering/Resolving]
  - Traumatic haematoma [Recovering/Resolving]

NARRATIVE: CASE EVENT DATE: 20200202
